FAERS Safety Report 5512674-2 (Version None)
Quarter: 2007Q4

REPORT INFORMATION
  Report Type: 
  Country: None (occurrence: None)
  Receive Date: 20071108
  Receipt Date: 20071029
  Transmission Date: 20080405
  Serious: Yes (Hospitalization)
  Sender: FDA-Public Use
  Company Number: 2007SP016760

PATIENT
  Age: 48 Year
  Sex: Female
  Weight: 59.8748 kg

DRUGS (2)
  1. RIBAVIRIN [Suspect]
     Indication: HEPATITIS C
     Dosage: 1000 MG;QD;PO; 800 MG;QD;PO
     Route: 048
     Dates: start: 20070608
  2. PEG-INTRON (PEGINTERFERON ALAF-2B) [Suspect]
     Indication: HEPATITIS C
     Dates: start: 20070606

REACTIONS (7)
  - BACK PAIN [None]
  - CELLULITIS [None]
  - DRUG HYPERSENSITIVITY [None]
  - NEUTROPENIA [None]
  - RED BLOOD CELL COUNT DECREASED [None]
  - SWELLING FACE [None]
  - WHITE BLOOD CELL COUNT DECREASED [None]
